FAERS Safety Report 24594450 (Version 1)
Quarter: 2024Q4

REPORT INFORMATION
  Report Type: Spontaneous
  Country: US (occurrence: US)
  Receive Date: 20241108
  Receipt Date: 20241108
  Transmission Date: 20250114
  Serious: Yes (Other)
  Sender: COOPERSURGICAL
  Company Number: US-COOPERSURGICAL, INC.-2024CPS003124

PATIENT
  Sex: Female
  Weight: 53.515 kg

DRUGS (4)
  1. PARAGARD T 380A [Suspect]
     Active Substance: COPPER
     Indication: Contraception
     Dosage: UNK
     Route: 015
     Dates: start: 2020, end: 20241022
  2. TIZANIDINE HYDROCHLORIDE [Concomitant]
     Active Substance: TIZANIDINE HYDROCHLORIDE
     Indication: Back pain
     Dosage: UNK, AS NEEDED
  3. PREDNISONE [Concomitant]
     Active Substance: PREDNISONE
     Indication: Back pain
     Dosage: UNK, AS NEEDED
  4. IRON [Concomitant]
     Active Substance: IRON

REACTIONS (7)
  - Salpingectomy [Recovered/Resolved]
  - Ectopic pregnancy with contraceptive device [Recovered/Resolved]
  - Drug ineffective [Unknown]
  - Blood iron decreased [Unknown]
  - Abnormal uterine bleeding [Recovered/Resolved]
  - Muscle spasms [Recovered/Resolved]
  - Pain [Recovered/Resolved]

NARRATIVE: CASE EVENT DATE: 20200101
